FAERS Safety Report 7308499 (Version 4)
Quarter: 2012Q4

REPORT INFORMATION
  Report Type: 
  Country: DE (occurrence: IT)
  Receive Date: 20100308
  Receipt Date: 20121213
  Transmission Date: 20130627
  Serious: Yes (Death)
  Sender: FDA-Public Use
  Company Number: IT-BRISTOL-MYERS SQUIBB COMPANY-15001688

PATIENT
  Age: 70 Year
  Sex: Male

DRUGS (1)
  1. ERBITUX SOLN FOR INF 5MG/ML [Suspect]
     Indication: NASOPHARYNGEAL CANCER
     Dosage: Erbitux 5 mg/ml
     Route: 042
     Dates: start: 20091228, end: 20100210

REACTIONS (1)
  - Toxic epidermal necrolysis [Fatal]
